FAERS Safety Report 5562984-8 (Version None)
Quarter: 2007Q4

REPORT INFORMATION
  Report Type: 
  Country: None (occurrence: None)
  Receive Date: 20071217
  Receipt Date: 20071205
  Transmission Date: 20080405
  Serious: Yes (Death)
  Sender: FDA-Public Use
  Company Number: VN-SP-2007-04159

PATIENT
  Age: 4 Year
  Sex: Male

DRUGS (2)
  1. VERORAB [Suspect]
     Indication: PROPHYLAXIS
     Route: 030
     Dates: start: 20071128
  2. IMMUNOGLOBULIN HUMAN ANTIRABIES [Suspect]
     Indication: PROPHYLAXIS
     Dosage: IM AND INFILTRATION
     Route: 030
     Dates: start: 20071121, end: 20071121

REACTIONS (8)
  - CONVULSION [None]
  - DEHYDRATION [None]
  - FEAR [None]
  - HYDROPHOBIA [None]
  - NAUSEA [None]
  - PRURITUS [None]
  - PYREXIA [None]
  - RABIES [None]
